FAERS Safety Report 18966530 (Version 1)
Quarter: 2021Q1

REPORT INFORMATION
  Report Type: Spontaneous
  Country: CZ (occurrence: CZ)
  Receive Date: 20210304
  Receipt Date: 20210304
  Transmission Date: 20210420
  Serious: Yes (Hospitalization, Disabling, Other)
  Sender: FDA-Public Use
  Company Number: CZ-AMGEN-CZESP2021030185

PATIENT
  Age: 83 Year
  Sex: Female
  Weight: 72 kg

DRUGS (9)
  1. VIGANTOL [COLECALCIFEROL] [Concomitant]
     Active Substance: CHOLECALCIFEROL
  2. PROLIA [Suspect]
     Active Substance: DENOSUMAB
     Indication: OSTEOPOROSIS POSTMENOPAUSAL
     Dosage: 60MG ONCE IN 6 MONTHS
     Route: 058
     Dates: start: 20191210, end: 20200625
  3. TENAXUM [Concomitant]
     Active Substance: RILMENIDINE
  4. TOLURA [Concomitant]
     Active Substance: TELMISARTAN
  5. SYMBICORT [Concomitant]
     Active Substance: BUDESONIDE\FORMOTEROL FUMARATE DIHYDRATE
  6. CALTRATE [CALCIUM CARBONATE;COLECALCIFEROL] [Concomitant]
  7. SPIRIVA [Concomitant]
     Active Substance: TIOTROPIUM BROMIDE MONOHYDRATE
  8. EUTHYROX [Concomitant]
     Active Substance: LEVOTHYROXINE SODIUM
  9. KAPIDIN [Concomitant]
     Active Substance: LERCANIDIPINE HYDROCHLORIDE

REACTIONS (1)
  - Femur fracture [Recovered/Resolved]

NARRATIVE: CASE EVENT DATE: 20200919
